FAERS Safety Report 8117923-2 (Version None)
Quarter: 2012Q1

REPORT INFORMATION
  Report Type: 
  Country: None (occurrence: None)
  Receive Date: 20120202
  Receipt Date: 20120126
  Transmission Date: 20120608
  Serious: Yes (Hospitalization, Other)
  Sender: FDA-Public Use
  Company Number: ADR-2012-00213

PATIENT
  Age: 49 Year
  Sex: Female

DRUGS (4)
  1. FENTANYL [Concomitant]
  2. BACLOFEN [Concomitant]
  3. LIORESAL [Suspect]
     Indication: PAIN
  4. BUPIVACAINE HCL [Concomitant]

REACTIONS (4)
  - SEROMA [None]
  - IMPLANT SITE INFECTION [None]
  - STAPHYLOCOCCAL INFECTION [None]
  - CELLULITIS [None]
